FAERS Safety Report 7082197-0 (Version None)
Quarter: 2010Q4

REPORT INFORMATION
  Report Type: 
  Country: None (occurrence: None)
  Receive Date: 20101103
  Receipt Date: 20101025
  Transmission Date: 20110411
  Serious: Yes (Life-Threatening)
  Sender: FDA-Public Use
  Company Number: JP-BAXTER-2010BH027012

PATIENT
  Age: 46 Year
  Sex: Male

DRUGS (11)
  1. CYCLOPHOSPHAMIDE [Suspect]
     Indication: HODGKIN'S DISEASE
     Route: 065
     Dates: start: 20100916, end: 20101006
  2. BLEOMYCIN GENERIC [Suspect]
     Indication: HODGKIN'S DISEASE
     Route: 065
     Dates: start: 20100916, end: 20101006
  3. ETOPOSIDE [Suspect]
     Indication: HODGKIN'S DISEASE
     Route: 065
     Dates: start: 20100916, end: 20101006
  4. DOXORUBICIN HCL [Suspect]
     Indication: HODGKIN'S DISEASE
     Route: 065
     Dates: start: 20100916, end: 20101006
  5. VINCRISTINE SULFATE [Suspect]
     Indication: HODGKIN'S DISEASE
     Route: 065
     Dates: start: 20100916, end: 20101006
  6. PROCARBAZINE HYDROCHLORIDE [Suspect]
     Indication: HODGKIN'S DISEASE
     Route: 065
     Dates: start: 20100916, end: 20101006
  7. PREDNISOLONE [Suspect]
     Indication: HODGKIN'S DISEASE
     Route: 065
     Dates: start: 20100916, end: 20101006
  8. BAKTAR [Suspect]
     Indication: HODGKIN'S DISEASE
     Route: 048
     Dates: start: 20100916, end: 20101010
  9. FLUCONAZOLE [Suspect]
     Indication: HODGKIN'S DISEASE
     Route: 048
     Dates: start: 20100916, end: 20101015
  10. LANSOPRAZOLE [Suspect]
     Indication: HODGKIN'S DISEASE
     Route: 048
     Dates: start: 20100916, end: 20101010
  11. LEVOFLOXACIN [Suspect]
     Indication: HODGKIN'S DISEASE
     Route: 048
     Dates: start: 20101004, end: 20101007

REACTIONS (1)
  - DRUG RASH WITH EOSINOPHILIA AND SYSTEMIC SYMPTOMS [None]
